FAERS Safety Report 22979458 (Version 2)
Quarter: 2023Q4

REPORT INFORMATION
  Report Type: Spontaneous
  Country: US (occurrence: US)
  Receive Date: 20230925
  Receipt Date: 20231130
  Transmission Date: 20240110
  Serious: Yes (Hospitalization, Other)
  Sender: FDA-Public Use
  Company Number: US-PFIZER INC-PV202300157743

PATIENT
  Age: 62 Year
  Sex: Female
  Weight: 58.957 kg

DRUGS (1)
  1. PROTONIX [Suspect]
     Active Substance: PANTOPRAZOLE SODIUM
     Dosage: UNK

REACTIONS (5)
  - Thoracic vertebral fracture [Unknown]
  - Rib fracture [Unknown]
  - Spinal fracture [Unknown]
  - Fracture [Unknown]
  - Osteoporosis [Unknown]
